FAERS Safety Report 5153411-3 (Version None)
Quarter: 2006Q4

REPORT INFORMATION
  Report Type: 
  Country: None (occurrence: None)
  Receive Date: 20061114
  Receipt Date: 20061103
  Transmission Date: 20070319
  Serious: Yes (Hospitalization)
  Sender: FDA-Public Use
  Company Number: 2006AP000945

PATIENT
  Age: 46 Year
  Sex: Male

DRUGS (4)
  1. CITALOPRAM HYDROBROMIDE [Suspect]
     Dosage: 40 MG QD; PO
     Route: 048
  2. DEXTROMETHORPHAN HYDROBROMIDE [Suspect]
     Indication: NASOPHARYNGITIS
  3. METHADONE HCL [Concomitant]
  4. GABAPENTIN [Concomitant]

REACTIONS (6)
  - ABDOMINAL SEPSIS [None]
  - BLOOD PRESSURE INCREASED [None]
  - DRUG INTERACTION [None]
  - NASOPHARYNGITIS [None]
  - SEROTONIN SYNDROME [None]
  - TOOTH EXTRACTION [None]
